FAERS Safety Report 13639774 (Version 1)
Quarter: 2017Q2

REPORT INFORMATION
  Report Type: Spontaneous
  Country: US (occurrence: US)
  Receive Date: 20170609
  Receipt Date: 20170609
  Transmission Date: 20170830
  Serious: No
  Sender: FDA-Public Use
  Company Number: US-ROCHE-1015547

PATIENT
  Age: 43 Year
  Sex: Female

DRUGS (2)
  1. CLONAZEPAM. [Suspect]
     Active Substance: CLONAZEPAM
     Indication: EPILEPSY
     Route: 065
  2. CLONAZEPAM. [Suspect]
     Active Substance: CLONAZEPAM
     Indication: TOURETTE^S DISORDER

REACTIONS (4)
  - Palpitations [Unknown]
  - Blood pressure increased [Unknown]
  - Cerebral disorder [Unknown]
  - Seizure [Unknown]
